FAERS Safety Report 20590384 (Version 3)
Quarter: 2022Q2

REPORT INFORMATION
  Report Type: Other
  Country: CA (occurrence: None)
  Receive Date: 20220314
  Receipt Date: 20220405
  Transmission Date: 20220721
  Serious: Yes (Other)
  Sender: FDA-Public Use
  Company Number: CA-ROCHE-3038302

PATIENT
  Age: 24 Year
  Sex: Female

DRUGS (2)
  1. OCREVUS [Suspect]
     Active Substance: OCRELIZUMAB
     Indication: Relapsing-remitting multiple sclerosis
     Dosage: 300 MG AT DAY 0 AND 14, THEN 600 MG EVERY 6 MONTH
     Route: 042
     Dates: start: 20180710
  2. ANTIBIOTICS (UNK INGREDIENTS) [Concomitant]

REACTIONS (7)
  - Tooth abscess [Recovered/Resolved]
  - Pyrexia [Recovered/Resolved]
  - COVID-19 [Recovered/Resolved]
  - Facial bones fracture [Unknown]
  - Tooth fracture [Unknown]
  - Gingivitis [Unknown]
  - Fall [Unknown]

NARRATIVE: CASE EVENT DATE: 20211126
